FAERS Safety Report 18915173 (Version 3)
Quarter: 2021Q2

REPORT INFORMATION
  Report Type: Spontaneous
  Country: US (occurrence: US)
  Receive Date: 20210219
  Receipt Date: 20210410
  Transmission Date: 20210717
  Serious: No
  Sender: FDA-Public Use
  Company Number: US-ALXN-A202102298

PATIENT
  Age: 31 Year
  Sex: Female
  Weight: 70.3 kg

DRUGS (2)
  1. STRENSIQ [Suspect]
     Active Substance: ASFOTASE ALFA
     Indication: HYPOPHOSPHATASIA
     Dosage: 140 MG, TIW I(N TWO INJECTIONS)
     Route: 058
     Dates: start: 20210215
  2. STRENSIQ [Suspect]
     Active Substance: ASFOTASE ALFA
     Dosage: UNK
     Route: 065

REACTIONS (4)
  - Injection site pain [Recovered/Resolved]
  - Bone pain [Unknown]
  - Condition aggravated [Unknown]
  - Growing pains [Unknown]

NARRATIVE: CASE EVENT DATE: 20210215
